FAERS Safety Report 6697009-4 (Version None)
Quarter: 2010Q2

REPORT INFORMATION
  Report Type: 
  Country: None (occurrence: None)
  Receive Date: 20100426
  Receipt Date: 20100417
  Transmission Date: 20101027
  Serious: Yes (Other)
  Sender: FDA-Public Use
  Company Number: SG-BAYER-201022761GPV

PATIENT
  Age: 73 Year
  Sex: Female

DRUGS (4)
  1. DACARBAZINE [Suspect]
     Indication: HODGKIN'S DISEASE
     Dosage: SIX CYCLES
     Dates: start: 19980101
  2. ADRIAMYCIN PFS [Suspect]
     Indication: HODGKIN'S DISEASE
     Dosage: SIX CYCLES
     Dates: start: 19980101
  3. BLEOMYCIN [Suspect]
     Indication: HODGKIN'S DISEASE
     Dosage: SIX CYCLES
     Dates: start: 19980101
  4. VINBLASTINE SULFATE [Suspect]
     Indication: HODGKIN'S DISEASE
     Dosage: SIX CYCLES
     Dates: start: 19980101

REACTIONS (4)
  - DIFFUSE LARGE B-CELL LYMPHOMA [None]
  - SPINAL CORD COMPRESSION [None]
  - TREATMENT RELATED SECONDARY MALIGNANCY [None]
  - TUMOUR COMPRESSION [None]
